FAERS Safety Report 9908145 (Version 1)
Quarter: 2014Q1

REPORT INFORMATION
  Report Type: Spontaneous
  Country: US (occurrence: None)
  Receive Date: 20140212
  Receipt Date: 20140212
  Transmission Date: 20141002
  Serious: Yes (Other)
  Sender: FDA-Public Use
  Company Number: None

PATIENT
  Age: 61 None
  Sex: Male
  Weight: 77.11 kg

DRUGS (3)
  1. CIPROFLOXICIN [Suspect]
     Indication: PROSTATOMEGALY
     Dosage: 1 PILL TIWCE DAILY
     Route: 048
     Dates: start: 20131218, end: 20140120
  2. CIPROFLOXICIN [Suspect]
     Indication: PROSTATITIS
     Dosage: 1 PILL TIWCE DAILY
     Route: 048
     Dates: start: 20131218, end: 20140120
  3. FLOMAX [Concomitant]

REACTIONS (6)
  - Arthralgia [None]
  - Arthralgia [None]
  - Myalgia [None]
  - Arthralgia [None]
  - Arthralgia [None]
  - Arthralgia [None]
